FAERS Safety Report 7563267-7 (Version None)
Quarter: 2011Q2

REPORT INFORMATION
  Report Type: 
  Country: None (occurrence: None)
  Receive Date: 20110615
  Receipt Date: 20110607
  Transmission Date: 20111010
  Serious: Yes (Hospitalization, Disabling, Other)
  Sender: FDA-Public Use
  Company Number: 2010SP042477

PATIENT
  Age: 31 Year
  Sex: Female
  Weight: 103.4201 kg

DRUGS (8)
  1. NUVARING [Suspect]
     Indication: MENSTRUAL CYCLE MANAGEMENT
     Dates: start: 20070601, end: 20070801
  2. NUVARING [Suspect]
     Indication: MENSTRUAL CYCLE MANAGEMENT
     Dates: end: 20060301
  3. NUVARING [Suspect]
     Indication: MENSTRUAL CYCLE MANAGEMENT
     Dates: start: 20030101, end: 20080707
  4. NUVARING [Suspect]
     Indication: MENSTRUAL CYCLE MANAGEMENT
     Dates: start: 20071001
  5. HYDROCHLOROTHIAZIDE [Concomitant]
  6. HERBALIFE [Concomitant]
  7. POTASSIUM CHLORIDE [Concomitant]
  8. METFORMIN HCL [Concomitant]

REACTIONS (60)
  - DEEP VEIN THROMBOSIS [None]
  - BREAST ENLARGEMENT [None]
  - DERMATITIS [None]
  - DIABETES MELLITUS INADEQUATE CONTROL [None]
  - ABDOMINAL PAIN [None]
  - PERITONEAL HAEMORRHAGE [None]
  - PRESYNCOPE [None]
  - INFERIOR VENA CAVA DILATATION [None]
  - RIGHT VENTRICULAR FAILURE [None]
  - DEVICE BREAKAGE [None]
  - CARDIOMEGALY [None]
  - APPLICATION SITE RASH [None]
  - ARTHRALGIA [None]
  - BODY TEMPERATURE INCREASED [None]
  - HAEMOCONCENTRATION [None]
  - TREATMENT NONCOMPLIANCE [None]
  - TRICUSPID VALVE INCOMPETENCE [None]
  - PULMONARY ARTERIAL HYPERTENSION [None]
  - PAIN IN EXTREMITY [None]
  - POLYCYSTIC OVARIES [None]
  - SYNOVIAL CYST [None]
  - ANXIETY [None]
  - INTERNATIONAL NORMALISED RATIO INCREASED [None]
  - DYSPNOEA [None]
  - RASH PRURITIC [None]
  - JOINT SWELLING [None]
  - SLEEP APNOEA SYNDROME [None]
  - BODY TEMPERATURE DECREASED [None]
  - ACNE [None]
  - INTERNATIONAL NORMALISED RATIO DECREASED [None]
  - DIZZINESS [None]
  - PLEURAL EFFUSION [None]
  - RIGHT ATRIAL DILATATION [None]
  - FLUID OVERLOAD [None]
  - VAGINAL HAEMORRHAGE [None]
  - RENAL FAILURE CHRONIC [None]
  - HEADACHE [None]
  - JAUNDICE [None]
  - CHEST PAIN [None]
  - HAEMORRHAGIC OVARIAN CYST [None]
  - FALLOPIAN TUBE CYST [None]
  - OXYGEN SATURATION DECREASED [None]
  - DILATATION VENTRICULAR [None]
  - PAIN IN JAW [None]
  - DEVICE EXPULSION [None]
  - PAIN [None]
  - PULMONARY FIBROSIS [None]
  - HAIR GROWTH ABNORMAL [None]
  - MENORRHAGIA [None]
  - PULMONARY EMBOLISM [None]
  - IMPAIRED WORK ABILITY [None]
  - OEDEMA PERIPHERAL [None]
  - THERMAL BURN [None]
  - AMENORRHOEA [None]
  - WEIGHT INCREASED [None]
  - SYNCOPE [None]
  - LUNG INFILTRATION [None]
  - PERICARDIAL EFFUSION [None]
  - CARDIAC OUTPUT DECREASED [None]
  - IATROGENIC INJURY [None]
